FAERS Safety Report 7458511-0 (Version None)
Quarter: 2011Q2

REPORT INFORMATION
  Report Type: 
  Country: None (occurrence: None)
  Receive Date: 20110503
  Receipt Date: 20110503
  Transmission Date: 20111010
  Serious: No
  Sender: FDA-Public Use
  Company Number: None

PATIENT
  Age: 43 Year
  Sex: Female

DRUGS (2)
  1. CONRAY [Suspect]
     Indication: ARTHROGRAM
     Dosage: 6ML ONCE
     Dates: start: 20110203, end: 20110203
  2. GADALINUM [Suspect]
     Dosage: 1ML ONCE
     Dates: start: 20110203, end: 20110203

REACTIONS (3)
  - SCRATCH [None]
  - PRURITUS GENERALISED [None]
  - ERYTHEMA [None]
